FAERS Safety Report 7923348 (Version 3)
Quarter: 2012Q4

REPORT INFORMATION
  Report Type: 
  Country: US (occurrence: US)
  Receive Date: 20110429
  Receipt Date: 20121120
  Transmission Date: 20130627
  Serious: No
  Sender: FDA-Public Use
  Company Number: US-ASTRAZENECA-2010SE24826

PATIENT
  Age: 68 Year
  Sex: Female

DRUGS (4)
  1. NEXIUM [Suspect]
     Route: 048
  2. NEXIUM [Suspect]
     Route: 048
  3. TOPROL XL [Suspect]
     Route: 048
  4. OMEPRAZOLE [Suspect]
     Route: 048

REACTIONS (9)
  - Throat irritation [Unknown]
  - Chest pain [Unknown]
  - Gastric disorder [Unknown]
  - Throat tightness [Unknown]
  - Mental disorder [Unknown]
  - Bronchitis [Unknown]
  - Incorrect dose administered [Unknown]
  - Intentional drug misuse [Unknown]
  - Drug ineffective [Unknown]
